FAERS Safety Report 5352328-9 (Version None)
Quarter: 2007Q2

REPORT INFORMATION
  Report Type: 
  Country: None (occurrence: None)
  Receive Date: 20070607
  Receipt Date: 20070607
  Transmission Date: 20071010
  Serious: Yes (Other)
  Sender: FDA-Public Use
  Company Number: None

PATIENT
  Age: 62 Year
  Sex: Female
  Weight: 54.4316 kg

DRUGS (1)
  1. BONIVA [Suspect]
     Indication: OSTEOPOROSIS
     Dosage: 1 150MG TABLET 1 PER MONTH PO
     Route: 048
     Dates: start: 20070602, end: 20070602

REACTIONS (6)
  - BLOOD PRESSURE INCREASED [None]
  - BONE PAIN [None]
  - CHEST DISCOMFORT [None]
  - CHEST PAIN [None]
  - CHILLS [None]
  - PYREXIA [None]
